FAERS Safety Report 5574570-4 (Version None)
Quarter: 2007Q4

REPORT INFORMATION
  Report Type: 
  Country: None (occurrence: None)
  Receive Date: 20071227
  Receipt Date: 20071221
  Transmission Date: 20080405
  Serious: Yes (Hospitalization)
  Sender: FDA-Public Use
  Company Number: BEWYE854525JUL05

PATIENT
  Sex: Male
  Weight: 95.7 kg

DRUGS (4)
  1. SIROLIMUS [Suspect]
     Indication: PROPHYLAXIS AGAINST TRANSPLANT REJECTION
     Route: 048
     Dates: start: 20050426
  2. MYCOPHENOLATE MOFETIL [Suspect]
     Indication: PROPHYLAXIS AGAINST TRANSPLANT REJECTION
     Dosage: 2000 MG/DAY
     Route: 048
     Dates: start: 20050426
  3. DACLIZUMAB [Concomitant]
     Dosage: 2 X 100 MG
  4. METHYLPREDNISOLONE 16MG TAB [Suspect]
     Indication: PROPHYLAXIS AGAINST TRANSPLANT REJECTION
     Dosage: 12 MG/DAY
     Route: 048
     Dates: start: 20050427

REACTIONS (1)
  - KIDNEY TRANSPLANT REJECTION [None]
